FAERS Safety Report 11249107 (Version 2)
Quarter: 2015Q4

REPORT INFORMATION
  Report Type: Spontaneous
  Country: IT (occurrence: IT)
  Receive Date: 20150708
  Receipt Date: 20151210
  Transmission Date: 20160304
  Serious: Yes (Other)
  Sender: FDA-Public Use
  Company Number: IT-CELGENE-ITA-2015070281

PATIENT

DRUGS (3)
  1. ROMIDEPSIN [Suspect]
     Active Substance: ROMIDEPSIN
     Route: 041
  2. ROMIDEPSIN [Suspect]
     Active Substance: ROMIDEPSIN
     Indication: PERIPHERAL T-CELL LYMPHOMA UNSPECIFIED
     Route: 041
  3. GEMCITABINE [Concomitant]
     Active Substance: GEMCITABINE\GEMCITABINE HYDROCHLORIDE
     Indication: PERIPHERAL T-CELL LYMPHOMA UNSPECIFIED
     Route: 041

REACTIONS (4)
  - Anaemia [Unknown]
  - Cardiotoxicity [Unknown]
  - Thrombocytopenia [Unknown]
  - Neutropenia [Unknown]
